FAERS Safety Report 19738445 (Version 8)
Quarter: 2022Q3

REPORT INFORMATION
  Report Type: Report from Study
  Country: DE (occurrence: DE)
  Receive Date: 20210823
  Receipt Date: 20220913
  Transmission Date: 20221026
  Serious: Yes (Hospitalization, Other)
  Sender: FDA-Public Use
  Company Number: DE-002147023-NVSC2020DE327506

PATIENT
  Age: 58 Year
  Sex: Female
  Weight: 60 kg

DRUGS (13)
  1. LETROZOLE [Suspect]
     Active Substance: LETROZOLE
     Indication: Breast cancer metastatic
     Dosage: 2.5 MILLIGRAM, QD (2.5 MG, QD (DAILY DOSE)
     Route: 048
     Dates: start: 20201015
  2. KISQALI [Suspect]
     Active Substance: RIBOCICLIB
     Indication: Breast cancer metastatic
     Dosage: ADMINISTRATION SCHEME 21DAYS INTAKE, 7DAYS PAUSE
     Route: 048
  3. KISQALI [Suspect]
     Active Substance: RIBOCICLIB
     Dosage: (DAILY DOSE)(SCHEME 21 DAYS INTAKE,7 DAYS PAUSE)
     Route: 048
     Dates: start: 20201112, end: 20201202
  4. KISQALI [Suspect]
     Active Substance: RIBOCICLIB
     Dosage: ADMINISTRATION SCHEME 21DAYS INTAKE, 7DAYS PAUSE
     Route: 048
     Dates: start: 20210113, end: 20210601
  5. KISQALI [Suspect]
     Active Substance: RIBOCICLIB
     Dosage: ADMINISTRATION SCHEME 21DAYS INTAKE, 7DAYS PAUSE
     Route: 048
     Dates: start: 20210610, end: 20210804
  6. KISQALI [Suspect]
     Active Substance: RIBOCICLIB
     Dosage: ADMINISTRATION SCHEME 21DAYS INTAKE, 7DAYS PAUSE
     Route: 048
     Dates: start: 20210812, end: 20210908
  7. KISQALI [Suspect]
     Active Substance: RIBOCICLIB
     Dosage: ADMINISTRATION SCHEME 21DAYS INTAKE, 7DAYS PAUSE
     Route: 048
     Dates: start: 20210916, end: 20211110
  8. KISQALI [Suspect]
     Active Substance: RIBOCICLIB
     Dosage: ADMINISTRATION SCHEME 21DAYS INTAKE, 7DAYS PAUSE
     Route: 048
     Dates: start: 20211116, end: 20220110
  9. KISQALI [Suspect]
     Active Substance: RIBOCICLIB
     Dosage: ADMINISTRATION SCHEME 21DAYS INTAKE, 7DAYS PAUSE
     Route: 048
     Dates: start: 20220118, end: 20220214
  10. KISQALI [Suspect]
     Active Substance: RIBOCICLIB
     Dosage: ADMINISTRATION SCHEME 21DAYS INTAKE, 7DAYS PAUSE)
     Route: 048
     Dates: start: 20220222, end: 20220321
  11. KISQALI [Suspect]
     Active Substance: RIBOCICLIB
     Dosage: ADMINISTRATION SCHEME 21DAYS INTAKE, 7DAYS PAUSE
     Route: 048
     Dates: start: 20220329, end: 20220425
  12. KISQALI [Suspect]
     Active Substance: RIBOCICLIB
     Dosage: ADMINISTRATION SCHEME 21DAYS INTAKE, 7DAYS PAUSE
     Route: 065
     Dates: start: 20220429, end: 20220526
  13. KISQALI [Suspect]
     Active Substance: RIBOCICLIB
     Dosage: ADMINISTRATION SCHEME 21DAYS INTAKE,7DAYS PAUSE
     Route: 065
     Dates: start: 20220603

REACTIONS (8)
  - Hip fracture [Recovered/Resolved]
  - Sinus tachycardia [Recovering/Resolving]
  - Arthralgia [Not Recovered/Not Resolved]
  - Anaemia [Not Recovered/Not Resolved]
  - Herpes zoster [Not Recovered/Not Resolved]
  - Herpes simplex [Recovered/Resolved]
  - Neutrophil count decreased [Not Recovered/Not Resolved]
  - Dry skin [Not Recovered/Not Resolved]

NARRATIVE: CASE EVENT DATE: 20201202
